FAERS Safety Report 25753370 (Version 1)
Quarter: 2025Q3

REPORT INFORMATION
  Report Type: Spontaneous
  Country: US (occurrence: US)
  Receive Date: 20250903
  Receipt Date: 20250903
  Transmission Date: 20251020
  Serious: No
  Sender: SANOFI AVENTIS
  Company Number: US-SA-2025SA262223

PATIENT
  Age: 63 Year
  Sex: Male

DRUGS (9)
  1. SARCLISA [Suspect]
     Active Substance: ISATUXIMAB-IRFC
     Dosage: 1106.7 MG, Q4W
     Route: 041
     Dates: start: 20250814
  2. SARCLISA [Suspect]
     Active Substance: ISATUXIMAB-IRFC
     Dosage: 1106.7 MG, QW
     Route: 041
     Dates: start: 20250828
  3. ACYCLOVIR [Concomitant]
     Active Substance: ACYCLOVIR
  4. DEXAMETHASONE [Concomitant]
     Active Substance: DEXAMETHASONE
  5. DIPHENHYDRAMINE [Concomitant]
     Active Substance: DIPHENHYDRAMINE
  6. PEPCID [Concomitant]
     Active Substance: FAMOTIDINE
  7. REVLIMID [Concomitant]
     Active Substance: LENALIDOMIDE
  8. TYLENOL [Concomitant]
     Active Substance: ACETAMINOPHEN
  9. VELCADE [Concomitant]
     Active Substance: BORTEZOMIB

REACTIONS (1)
  - Inappropriate schedule of product administration [Unknown]

NARRATIVE: CASE EVENT DATE: 20250814
